FAERS Safety Report 23498656 (Version 2)
Quarter: 2024Q1

REPORT INFORMATION
  Report Type: Spontaneous
  Country: IE (occurrence: IE)
  Receive Date: 20240207
  Receipt Date: 20240329
  Transmission Date: 20240410
  Serious: Yes (Hospitalization)
  Sender: FDA-Public Use
  Company Number: IE-MEN-2024-093166

PATIENT
  Sex: Male

DRUGS (3)
  1. RANEXA [Suspect]
     Active Substance: RANOLAZINE
     Dosage: 1000 MG, QD
     Route: 065
  2. RANEXA [Suspect]
     Active Substance: RANOLAZINE
     Dosage: 1500 MG, QD
     Route: 065
     Dates: end: 20230828
  3. PREGABALIN [Concomitant]
     Active Substance: PREGABALIN
     Dosage: 200 MG, QD
     Route: 065

REACTIONS (5)
  - Dyspnoea [Unknown]
  - Chest pain [Unknown]
  - Cough [Unknown]
  - Myoclonus [Recovered/Resolved]
  - Condition aggravated [Recovered/Resolved]

NARRATIVE: CASE EVENT DATE: 20230802
